FAERS Safety Report 6213814-2 (Version None)
Quarter: 2009Q2

REPORT INFORMATION
  Report Type: 
  Country: None (occurrence: None)
  Receive Date: 20090602
  Receipt Date: 20090524
  Transmission Date: 20091009
  Serious: Yes (Other)
  Sender: FDA-Public Use
  Company Number: 2009SP011148

PATIENT
  Sex: Male

DRUGS (5)
  1. PEG-INTRON [Suspect]
     Indication: HEPATITIS C
     Dates: start: 20090101
  2. RIBAVIRIN [Suspect]
     Indication: HEPATITIS C
     Dates: start: 20090101
  3. ADDERALL 10 [Concomitant]
  4. NORTRIPTYLINE HCL [Concomitant]
  5. ZOLOFT [Concomitant]

REACTIONS (11)
  - ALCOHOLISM [None]
  - ATTENTION DEFICIT/HYPERACTIVITY DISORDER [None]
  - DELIRIUM TREMENS [None]
  - DRUG DOSE OMISSION [None]
  - FEELING ABNORMAL [None]
  - HEADACHE [None]
  - HOMICIDAL IDEATION [None]
  - MEMORY IMPAIRMENT [None]
  - MENTAL DISORDER [None]
  - MOOD SWINGS [None]
  - SUICIDAL IDEATION [None]
